FAERS Safety Report 5610700-3 (Version None)
Quarter: 2008Q1

REPORT INFORMATION
  Report Type: 
  Country: None (occurrence: None)
  Receive Date: 20080130
  Receipt Date: 20080130
  Transmission Date: 20080703
  Serious: Yes (Other)
  Sender: FDA-Public Use
  Company Number: None

PATIENT
  Age: 39 Year
  Sex: Female
  Weight: 54.4316 kg

DRUGS (1)
  1. VITAMIN B-12 [Suspect]
     Indication: VITAMIN B12 DEFICIENCY
     Dosage: 2 CC??   1 TIME  IM
     Route: 030
     Dates: start: 20080128, end: 20080128

REACTIONS (6)
  - ANXIETY [None]
  - DIARRHOEA [None]
  - HEART RATE INCREASED [None]
  - MYALGIA [None]
  - ORTHOPNOEA [None]
  - PRESYNCOPE [None]
